FAERS Safety Report 4294235-9 (Version None)
Quarter: 2004Q1

REPORT INFORMATION
  Report Type: 
  Country: None (occurrence: None)
  Receive Date: 20040211
  Receipt Date: 20040211
  Transmission Date: 20041129
  Serious: Yes (Disabling)
  Sender: FDA-Public Use
  Company Number: None

PATIENT
  Age: 43 Year
  Sex: Male
  Weight: 74.8435 kg

DRUGS (2)
  1. PREDNISONE TAB [Suspect]
     Indication: INFECTION
     Dosage: 2 TIMES BY MOUTH DAILY
     Route: 048
     Dates: start: 20020816, end: 20020823
  2. PREDNISONE TAB [Suspect]
     Indication: SWELLING
     Dosage: 2 TIMES BY MOUTH DAILY
     Route: 048
     Dates: start: 20020816, end: 20020823

REACTIONS (1)
  - GLAUCOMA [None]
